FAERS Safety Report 8159249-7 (Version None)
Quarter: 2012Q1

REPORT INFORMATION
  Report Type: 
  Country: None (occurrence: None)
  Receive Date: 20120217
  Receipt Date: 20120208
  Transmission Date: 20120608
  Serious: Yes (Hospitalization, Other)
  Sender: FDA-Public Use
  Company Number: 2008JP000213

PATIENT
  Age: 50 Year
  Sex: Female
  Weight: 61 kg

DRUGS (4)
  1. PROGRAF [Suspect]
     Indication: PROPHYLAXIS AGAINST GRAFT VERSUS HOST DISEASE
     Dosage: 3 MG, UID/QD, ORAL
     Route: 048
     Dates: start: 20071101
  2. PROGRAF [Suspect]
     Indication: STEM CELL TRANSPLANT
     Dosage: 3 MG, UID/QD, ORAL
     Route: 048
     Dates: start: 20071101
  3. METHOTREXATE [Concomitant]
  4. PREDNISOLONE [Concomitant]

REACTIONS (4)
  - DIABETES MELLITUS [None]
  - OEDEMA PERIPHERAL [None]
  - ACUTE GRAFT VERSUS HOST DISEASE [None]
  - DRUG INEFFECTIVE [None]
